FAERS Safety Report 13594271 (Version 16)
Quarter: 2019Q4

REPORT INFORMATION
  Report Type: Report from Study
  Country: US (occurrence: US)
  Receive Date: 20170530
  Receipt Date: 20191231
  Transmission Date: 20200122
  Serious: Yes (Hospitalization, Other)
  Sender: FDA-Public Use
  Company Number: US-ACTELION-A-NJ2017-154498

PATIENT
  Sex: Female
  Weight: 64.85 kg

DRUGS (13)
  1. VELETRI [Suspect]
     Active Substance: EPOPROSTENOL
     Dosage: 4.5 NG/KG, PER MIN
     Route: 042
     Dates: start: 201705
  2. ADEMPAS [Concomitant]
     Active Substance: RIOCIGUAT
  3. VELETRI [Suspect]
     Active Substance: EPOPROSTENOL
     Dosage: 31 NG/KG, PER MIN
     Route: 042
  4. TYVASO [Concomitant]
     Active Substance: TREPROSTINIL
  5. TRACLEER [Suspect]
     Active Substance: BOSENTAN
     Dosage: UNK
     Route: 048
  6. VELETRI [Suspect]
     Active Substance: EPOPROSTENOL
     Dosage: 7 NG/KG, PER MIN
     Route: 042
  7. VELETRI [Suspect]
     Active Substance: EPOPROSTENOL
     Dosage: 44.5 NG/KG, PER MIN
     Route: 042
  8. ADCIRCA [Concomitant]
     Active Substance: TADALAFIL
  9. ELIQUIS [Concomitant]
     Active Substance: APIXABAN
  10. VELETRI [Suspect]
     Active Substance: EPOPROSTENOL
     Dosage: 29 NG/KG, PER MIN
     Route: 042
  11. VELETRI [Suspect]
     Active Substance: EPOPROSTENOL
     Indication: PULMONARY ARTERIAL HYPERTENSION
     Dosage: 39 NG/KG, PER MIN
     Route: 042
  12. TRACLEER [Suspect]
     Active Substance: BOSENTAN
     Indication: PULMONARY ARTERIAL HYPERTENSION
     Dosage: 125 MG, BID
     Route: 048
  13. VELETRI [Suspect]
     Active Substance: EPOPROSTENOL
     Dosage: 37 NG/KG, PER MIN
     Route: 042

REACTIONS (29)
  - Pain in jaw [Unknown]
  - Oxygen consumption increased [Unknown]
  - Pain in extremity [Unknown]
  - Gastrointestinal disorder [Recovering/Resolving]
  - Bronchitis [Unknown]
  - Condition aggravated [Unknown]
  - Peripheral swelling [Unknown]
  - Chest pain [Unknown]
  - Palpitations [Not Recovered/Not Resolved]
  - Nausea [Recovered/Resolved]
  - Anxiety [Not Recovered/Not Resolved]
  - Myalgia [Unknown]
  - Weight decreased [Recovered/Resolved]
  - Decreased appetite [Recovering/Resolving]
  - Muscle spasms [Unknown]
  - Nasal congestion [Unknown]
  - Therapy non-responder [Unknown]
  - Cardiomegaly [Unknown]
  - Headache [Not Recovered/Not Resolved]
  - Diarrhoea [Not Recovered/Not Resolved]
  - Application site irritation [Recovering/Resolving]
  - Heart rate increased [Unknown]
  - Abdominal discomfort [Unknown]
  - Dyspnoea [Not Recovered/Not Resolved]
  - Transplant evaluation [Unknown]
  - First bite syndrome [Unknown]
  - Hyperaesthesia teeth [Unknown]
  - Pulmonary hypertension [Unknown]
  - Migraine [Unknown]
